FAERS Safety Report 5959066-X (Version None)
Quarter: 2008Q4

REPORT INFORMATION
  Report Type: 
  Country: None (occurrence: None)
  Receive Date: 20081120
  Receipt Date: 20071108
  Transmission Date: 20090506
  Serious: No
  Sender: FDA-Public Use
  Company Number: A0686481A

PATIENT
  Age: 59 Year
  Sex: Male

DRUGS (5)
  1. BUPROPION HCL [Suspect]
     Indication: DEPRESSION
     Dosage: 150MG PER DAY
     Dates: start: 20070910, end: 20070929
  2. BUPROPION HCL [Suspect]
     Indication: DEPRESSION
  3. LISINOPRIL AND HYDROCHLOROTHIAZIDE [Concomitant]
     Indication: HYPERTENSION
  4. GLUCOSAMINE CHONDROITIN [Concomitant]
  5. MULTIVITAMIN PACKET [Concomitant]

REACTIONS (4)
  - ANXIETY [None]
  - DYSPNOEA [None]
  - PANIC ATTACK [None]
  - PRODUCT QUALITY ISSUE [None]
